FAERS Safety Report 21438509 (Version 1)
Quarter: 2022Q4

REPORT INFORMATION
  Report Type: Spontaneous
  Country: GB (occurrence: GB)
  Receive Date: 20221011
  Receipt Date: 20221011
  Transmission Date: 20230113
  Serious: Yes (Hospitalization, Other)
  Sender: FDA-Public Use
  Company Number: None

PATIENT
  Age: 74 Year
  Sex: Female

DRUGS (6)
  1. IBUPROFEN [Suspect]
     Active Substance: IBUPROFEN
     Indication: Back pain
     Dosage: 3.2 GRAM, OD
     Route: 065
  2. BECLOMETHASONE\FORMOTEROL [Concomitant]
     Active Substance: BECLOMETHASONE\FORMOTEROL
     Indication: Product used for unknown indication
     Dosage: 4 DOSAGE FORM, OD,100MICROGRAMS/DOSE / PAGE 5 OF 8 6MICROGRAMS/DOSE INHALER TWO PUFFS TO BE INHALED
  3. BUPRENORPHINE [Concomitant]
     Active Substance: BUPRENORPHINE
     Indication: Product used for unknown indication
     Dosage: 5 MICROGRAM
     Route: 062
  4. LANSOPRAZOLE [Concomitant]
     Active Substance: LANSOPRAZOLE
     Indication: Product used for unknown indication
     Dosage: 30 MILLIGRAM, OD,GASTRO-RESISTANT CAPSULE
  5. VENTOLIN [Concomitant]
     Active Substance: ALBUTEROL SULFATE
     Indication: Product used for unknown indication
     Dosage: UNK ,100MICROGRAMS/DOSE EVOHALER ONE OR TWO PUFFS TO BE INHALED UP TO FOUR TIMES A DAY - PRN , AS NE
  6. SPIRIVA [Concomitant]
     Active Substance: TIOTROPIUM BROMIDE MONOHYDRATE
     Indication: Product used for unknown indication
     Dosage: 5 MICROGRAM, OD, 2.5MICROGRAMS/DOSE INHALATION SOLUTION CARTRIDGE WITH DEVICE TWO PUFFS TO BE INHALE

REACTIONS (3)
  - Transient ischaemic attack [Recovering/Resolving]
  - Overdose [Unknown]
  - Muscular weakness [Unknown]
